FAERS Safety Report 4381905-7 (Version None)
Quarter: 2004Q2

REPORT INFORMATION
  Report Type: 
  Country: None (occurrence: None)
  Receive Date: 20040615
  Receipt Date: 20040602
  Transmission Date: 20050107
  Serious: Yes (Hospitalization)
  Sender: FDA-Public Use
  Company Number: 200411740GDS

PATIENT
  Age: 70 Year
  Sex: Male

DRUGS (11)
  1. ASPIRIN [Suspect]
     Indication: PROPHYLAXIS
     Dosage: 100 MG, TOTAL DAILY, ORAL
     Route: 048
  2. MOBICOX (MELOXICAM) [Suspect]
     Indication: BACK PAIN
     Dosage: 7.5 MG, TOTAL DAILY, ORAL
     Route: 048
     Dates: start: 20040322, end: 20040508
  3. ENATEC (ENALAPRIL MALEATE) [Suspect]
     Dosage: 20 MG, TOTAL DAILY, ORAL
     Route: 048
     Dates: end: 20040508
  4. ZOLOFT [Concomitant]
  5. NORVASC [Concomitant]
  6. METFIN [Concomitant]
  7. XATRAL [Concomitant]
  8. SORTIS [Concomitant]
  9. DAFALGAN [Concomitant]
  10. NEURONTIN [Concomitant]
  11. STARLIX [Concomitant]

REACTIONS (4)
  - ABDOMINAL PAIN UPPER [None]
  - GASTROOESOPHAGEAL REFLUX DISEASE [None]
  - HYPERKALAEMIA [None]
  - RENAL FAILURE ACUTE [None]
